FAERS Safety Report 22138948 (Version 1)
Quarter: 2023Q1

REPORT INFORMATION
  Report Type: Spontaneous
  Country: US (occurrence: None)
  Receive Date: 20230327
  Receipt Date: 20230327
  Transmission Date: 20230418
  Serious: No
  Sender: FDA-Public Use
  Company Number: 2023A058893

PATIENT

DRUGS (1)
  1. BUDESONIDE\FORMOTEROL\GLYCOPYRRONIUM [Suspect]
     Active Substance: BUDESONIDE\FORMOTEROL\GLYCOPYRRONIUM
     Indication: Chronic obstructive pulmonary disease
     Route: 055

REACTIONS (6)
  - Asthma [Unknown]
  - Device use issue [Unknown]
  - Incorrect dose administered by device [Unknown]
  - Product dose omission issue [Unknown]
  - Drug ineffective [Unknown]
  - Device issue [Unknown]
